FAERS Safety Report 16138097 (Version 2)
Quarter: 2019Q2

REPORT INFORMATION
  Report Type: Report from Study
  Country: None (occurrence: US)
  Receive Date: 20190330
  Receipt Date: 20190412
  Transmission Date: 20190711
  Serious: Yes (Hospitalization, Other)
  Sender: FDA-Public Use
  Company Number: US-ABBVIE-19K-163-2724002-00

PATIENT
  Age: 82 Year
  Sex: Female

DRUGS (1)
  1. HUMIRA [Suspect]
     Active Substance: ADALIMUMAB
     Indication: RHEUMATOID ARTHRITIS
     Dosage: HUMIRA CF PEN
     Route: 058

REACTIONS (4)
  - Fall [Recovering/Resolving]
  - Joint injury [Unknown]
  - Postoperative wound infection [Unknown]
  - Joint instability [Unknown]

NARRATIVE: CASE EVENT DATE: 20190325
